FAERS Safety Report 22144673 (Version 1)
Quarter: 2023Q1

REPORT INFORMATION
  Report Type: Other
  Country: SI (occurrence: SI)
  Receive Date: 20230328
  Receipt Date: 20230328
  Transmission Date: 20230417
  Serious: Yes (Other)
  Sender: FDA-Public Use
  Company Number: SI-CELLTRION INC.-2023SI006301

PATIENT

DRUGS (8)
  1. TRUXIMA [Suspect]
     Active Substance: RITUXIMAB-ABBS
     Indication: Follicular lymphoma
     Dosage: 800 MG [OF TRUXIMA 100 MG CONCENTRATE FOR SOLUION FOR INFUSION)
     Route: 042
     Dates: start: 20230119, end: 20230119
  2. TRUXIMA [Suspect]
     Active Substance: RITUXIMAB-ABBS
     Dosage: 800 MG (OF TRUXIMA 500 MG CONCENTRATE FOR SOLUTION FOR INFUSION)
     Route: 042
     Dates: start: 20230119, end: 20230119
  3. PANTOPRAZOLE SODIUM [Concomitant]
     Active Substance: PANTOPRAZOLE SODIUM
     Dosage: 40 MG
  4. PERINDOPRIL [Concomitant]
     Active Substance: PERINDOPRIL
     Dosage: 8 MG
  5. BISOPROLOL FUMARATE [Concomitant]
     Active Substance: BISOPROLOL FUMARATE
     Dosage: 2,5MG+1,25MG
  6. BISOPROLOL FUMARATE [Concomitant]
     Active Substance: BISOPROLOL FUMARATE
     Dosage: 2,5MG+1,25MG
  7. FRAGMIN [Concomitant]
     Active Substance: DALTEPARIN SODIUM
     Dosage: 2X/DAY
  8. ALLOPURINOL [Concomitant]
     Active Substance: ALLOPURINOL
     Dosage: ACCORDING TO THE SCHEME

REACTIONS (4)
  - Feeling hot [Recovered/Resolved]
  - Atrial fibrillation [Recovered/Resolved]
  - Infusion related reaction [Recovered/Resolved]
  - Chest pain [Recovered/Resolved]

NARRATIVE: CASE EVENT DATE: 20230119
